FAERS Safety Report 5057174-1 (Version None)
Quarter: 2006Q3

REPORT INFORMATION
  Report Type: 
  Country: None (occurrence: None)
  Receive Date: 20060721
  Receipt Date: 20050405
  Transmission Date: 20061208
  Serious: No
  Sender: FDA-Public Use
  Company Number: US-GLAXOSMITHKLINE-A0552835A

PATIENT
  Age: 80 Year
  Sex: Male

DRUGS (10)
  1. AVANDIA [Suspect]
     Dosage: 4MG PER DAY
     Route: 048
     Dates: start: 20050501
  2. INSULIN [Concomitant]
  3. AMARYL [Concomitant]
  4. ATENOLOL [Concomitant]
     Route: 065
  5. PROCRIT [Concomitant]
     Route: 065
  6. ZETIA [Concomitant]
     Route: 065
  7. PROTONIX [Concomitant]
     Route: 065
  8. PRAVACHOL [Concomitant]
     Route: 065
  9. FOLIC ACID [Concomitant]
     Route: 065
  10. PLAVIX [Concomitant]
     Route: 065

REACTIONS (3)
  - BLOOD GLUCOSE INCREASED [None]
  - BLOOD TEST ABNORMAL [None]
  - FATIGUE [None]
